FAERS Safety Report 7003113-3 (Version None)
Quarter: 2010Q3

REPORT INFORMATION
  Report Type: 
  Country: None (occurrence: None)
  Receive Date: 20100920
  Receipt Date: 20100422
  Transmission Date: 20110219
  Serious: No
  Sender: FDA-Public Use
  Company Number: US-ASTRAZENECA-2010SE18167

PATIENT
  Age: 554 Month
  Sex: Male
  Weight: 120.2 kg

DRUGS (1)
  1. SEROQUEL [Suspect]
     Indication: SCHIZOPHRENIA
     Route: 048
     Dates: start: 20090501, end: 20091101

REACTIONS (2)
  - DRUG DOSE OMISSION [None]
  - INSOMNIA [None]
